FAERS Safety Report 8925387 (Version 1)
Quarter: 2012Q4

REPORT INFORMATION
  Report Type: Spontaneous
  Country: US (occurrence: None)
  Receive Date: 20121126
  Receipt Date: 20121126
  Transmission Date: 20130627
  Serious: Yes (Disabling)
  Sender: FDA-Public Use
  Company Number: None

PATIENT
  Age: 31 Year
  Sex: Female
  Weight: 57 kg

DRUGS (1)
  1. CIPROFLOXACIN 500 MG BAY [Suspect]

REACTIONS (18)
  - Quality of life decreased [None]
  - Nerve injury [None]
  - Arthralgia [None]
  - Paraesthesia [None]
  - Hypoaesthesia [None]
  - Feeling abnormal [None]
  - Amnesia [None]
  - Feeling cold [None]
  - Tinnitus [None]
  - Hearing impaired [None]
  - Toothache [None]
  - Vertigo [None]
  - Insomnia [None]
  - Anxiety [None]
  - Myalgia [None]
  - Tendon pain [None]
  - Food intolerance [None]
  - Social problem [None]
